FAERS Safety Report 11860715 (Version 1)
Quarter: 2015Q4

REPORT INFORMATION
  Report Type: Spontaneous
  Country: AU (occurrence: AU)
  Receive Date: 20151222
  Receipt Date: 20151222
  Transmission Date: 20160305
  Serious: Yes (Other)
  Sender: FDA-Public Use
  Company Number: AU-APOTEX-2015AP015351

PATIENT
  Age: 18 Year
  Sex: Male

DRUGS (5)
  1. APO-ATORVASTATIN [Suspect]
     Active Substance: ATORVASTATIN
     Indication: METABOLIC SYNDROME
     Dosage: 10 MG, DAILY
     Route: 065
  2. FLUOXETINE [Concomitant]
     Active Substance: FLUOXETINE HYDROCHLORIDE
     Indication: MENTAL DISORDER
     Dosage: 20 MG IN MORNING
     Route: 065
  3. METFORMIN [Concomitant]
     Active Substance: METFORMIN HYDROCHLORIDE
     Indication: METABOLIC SYNDROME
     Dosage: UNK
     Route: 065
  4. METFORMIN [Concomitant]
     Active Substance: METFORMIN HYDROCHLORIDE
     Dosage: 1 G, BID OVER 4 WEEKS
     Route: 065
  5. APO-ATORVASTATIN [Suspect]
     Active Substance: ATORVASTATIN
     Dosage: 5 MG IN THE MORNING
     Route: 065

REACTIONS (2)
  - Myopathy [Recovering/Resolving]
  - Immune-mediated necrotising myopathy [Recovering/Resolving]
